FAERS Safety Report 11010628 (Version 1)
Quarter: 2015Q2

REPORT INFORMATION
  Report Type: Spontaneous
  Country: US (occurrence: US)
  Receive Date: 20150410
  Receipt Date: 20150410
  Transmission Date: 20150821
  Serious: No
  Sender: FDA-Public Use
  Company Number: US-ASTRAZENECA-2015SE31114

PATIENT
  Age: 26469 Day
  Sex: Female
  Weight: 72.6 kg

DRUGS (2)
  1. FASLODEX [Suspect]
     Active Substance: FULVESTRANT
     Indication: BREAST CANCER
     Dosage: 2 X 5.0 ML PREFILLED SYRINGE, 500 MG MONTHLY
     Route: 030
     Dates: start: 201106
  2. XGEVA [Concomitant]
     Active Substance: DENOSUMAB

REACTIONS (2)
  - Injection site extravasation [Unknown]
  - Intentional product misuse [Unknown]

NARRATIVE: CASE EVENT DATE: 20150326
